FAERS Safety Report 5651112-6 (Version None)
Quarter: 2008Q1

REPORT INFORMATION
  Report Type: 
  Country: None (occurrence: None)
  Receive Date: 20080131
  Receipt Date: 20071101
  Transmission Date: 20080703
  Serious: No
  Sender: FDA-Public Use
  Company Number: US200711000502

PATIENT
  Age: 53 Year
  Sex: Female
  Weight: 83.4 kg

DRUGS (9)
  1. BYETTA [Suspect]
     Indication: TYPE 2 DIABETES MELLITUS
     Dosage: 5 UG, 2/D, SUBCUTANEOUS, 10 UG, 2/D, SUBCUTANEOUS
     Route: 058
     Dates: start: 20060701, end: 20060801
  2. BYETTA [Suspect]
     Indication: TYPE 2 DIABETES MELLITUS
     Dosage: 5 UG, 2/D, SUBCUTANEOUS, 10 UG, 2/D, SUBCUTANEOUS
     Route: 058
     Dates: start: 20060801
  3. AVANDIA [Concomitant]
  4. COREG [Concomitant]
  5. AVALIDE (HYDROCHLOTHIAZIDE, IRBESARTAN) [Concomitant]
  6. CRESTOR [Concomitant]
  7. LEXAPRO [Concomitant]
  8. LEVOTHYROXINE SODIUM [Concomitant]
  9. NORVASC [Concomitant]

REACTIONS (4)
  - BLOOD GLUCOSE DECREASED [None]
  - DECREASED APPETITE [None]
  - FEELING ABNORMAL [None]
  - WEIGHT DECREASED [None]
